FAERS Safety Report 12147141 (Version 1)
Quarter: 2016Q1

REPORT INFORMATION
  Report Type: Spontaneous
  Country: CN (occurrence: CN)
  Receive Date: 20160304
  Receipt Date: 20160304
  Transmission Date: 20160526
  Serious: Yes (Other)
  Sender: FDA-Public Use
  Company Number: CN-JNJFOC-20160302230

PATIENT

DRUGS (4)
  1. VALPROATE MAGNESIUM [Suspect]
     Active Substance: VALPROATE MAGNESIUM
     Indication: GENERALISED TONIC-CLONIC SEIZURE
     Route: 065
  2. TOPAMAX [Suspect]
     Active Substance: TOPIRAMATE
     Indication: GENERALISED TONIC-CLONIC SEIZURE
     Route: 048
  3. TOPAMAX [Suspect]
     Active Substance: TOPIRAMATE
     Indication: GENERALISED TONIC-CLONIC SEIZURE
     Dosage: 50-75 MG/TIME QD OR BID
     Route: 048
  4. ESTAZOLAM. [Suspect]
     Active Substance: ESTAZOLAM
     Indication: GENERALISED TONIC-CLONIC SEIZURE
     Dosage: 1-2 MG BEFORE BEDTIME
     Route: 065

REACTIONS (4)
  - Mania [Recovering/Resolving]
  - Electroencephalogram abnormal [Recovering/Resolving]
  - Mental impairment [Recovering/Resolving]
  - Dementia [Recovering/Resolving]
